FAERS Safety Report 4614913-9 (Version None)
Quarter: 2005Q1

REPORT INFORMATION
  Report Type: 
  Country: None (occurrence: None)
  Receive Date: 20050322
  Receipt Date: 20050315
  Transmission Date: 20050727
  Serious: Yes (Hospitalization)
  Sender: FDA-Public Use
  Company Number: PHNU2005DE01362

PATIENT
  Sex: Male

DRUGS (2)
  1. VOLTAREN [Suspect]
     Indication: ARTHRALGIA
     Route: 042
  2. SERUMLIPIDREDUCING AGENTS [Concomitant]

REACTIONS (2)
  - LUNG DISORDER [None]
  - RENAL FAILURE [None]
